FAERS Safety Report 17217207 (Version 1)
Quarter: 2019Q4

REPORT INFORMATION
  Report Type: Spontaneous
  Country: BE (occurrence: BE)
  Receive Date: 20191231
  Receipt Date: 20191231
  Transmission Date: 20200122
  Serious: Yes (Death, Other)
  Sender: FDA-Public Use
  Company Number: BE-AUROBINDO-AUR-APL-2019-107695

PATIENT
  Sex: Female
  Weight: 65 kg

DRUGS (9)
  1. NEXIAM [Suspect]
     Active Substance: ESOMEPRAZOLE
     Indication: GASTRIC ULCER HAEMORRHAGE
     Dosage: UNK
     Route: 065
     Dates: start: 201905
  2. LEDERTREXATE [Suspect]
     Active Substance: METHOTREXATE
     Indication: PRODUCT USED FOR UNKNOWN INDICATION
     Dosage: 1 DOSAGE FORM, EVERY WEEK
     Route: 065
     Dates: start: 2000, end: 2001
  3. ALDACTONE [Concomitant]
     Active Substance: SPIRONOLACTONE
     Indication: PRODUCT USED FOR UNKNOWN INDICATION
     Dosage: 200 MILLIGRAM, ONCE A DAY
     Route: 065
  4. SINTROM [Suspect]
     Active Substance: ACENOCOUMAROL
     Indication: PRODUCT USED FOR UNKNOWN INDICATION
     Dosage: UNK
     Route: 065
     Dates: start: 2014
  5. BURINEX [Concomitant]
     Active Substance: BUMETANIDE
     Indication: PRODUCT USED FOR UNKNOWN INDICATION
     Dosage: 7.5 MILLIGRAM, EVERY WEEK
     Route: 065
  6. SPIRONOLACTONE. [Concomitant]
     Active Substance: SPIRONOLACTONE
     Indication: PRODUCT USED FOR UNKNOWN INDICATION
     Dosage: 1 DOSAGE FORM, EVERY WEEK,INCREASED IN 2015
     Route: 065
  7. LANSOPRAZOLE. [Concomitant]
     Active Substance: LANSOPRAZOLE
     Indication: PRODUCT USED FOR UNKNOWN INDICATION
     Dosage: UNK
     Route: 065
     Dates: start: 201207
  8. OMEPRAZOLE 20MG [Suspect]
     Active Substance: OMEPRAZOLE
     Indication: PRODUCT USED FOR UNKNOWN INDICATION
     Dosage: UNK
     Route: 065
     Dates: start: 201401
  9. PANTOMED (DEXPANTHENOL) [Suspect]
     Active Substance: DEXPANTHENOL
     Indication: PRODUCT USED FOR UNKNOWN INDICATION
     Dosage: UNK
     Route: 065
     Dates: start: 201410, end: 2016

REACTIONS (27)
  - Coma [Fatal]
  - Renal impairment [Fatal]
  - Varices oesophageal [Fatal]
  - Confusional state [Fatal]
  - Renal failure [Fatal]
  - Blood creatinine increased [Fatal]
  - Hypertension [Fatal]
  - Lip haemorrhage [Fatal]
  - Ascites [Fatal]
  - Malaise [Fatal]
  - Renal injury [Fatal]
  - Gastritis [Fatal]
  - Dyspnoea [Fatal]
  - Fatigue [Fatal]
  - Hepatic fibrosis [Fatal]
  - Tubulointerstitial nephritis [Fatal]
  - Somnolence [Fatal]
  - Constipation [Fatal]
  - Diuretic therapy [Fatal]
  - Yellow skin [Fatal]
  - Skin disorder [Fatal]
  - Blood urea increased [Fatal]
  - Blood test abnormal [Fatal]
  - Hepatic cirrhosis [Fatal]
  - Encephalopathy [Fatal]
  - Dry mouth [Fatal]
  - Gastrointestinal ulcer [Fatal]

NARRATIVE: CASE EVENT DATE: 200106
